FAERS Safety Report 4389349-9 (Version None)
Quarter: 2004Q2

REPORT INFORMATION
  Report Type: 
  Country: None (occurrence: None)
  Receive Date: 20040628
  Receipt Date: 20040615
  Transmission Date: 20050107
  Serious: Yes (Death)
  Sender: FDA-Public Use
  Company Number: IE-JNJFOC-20040401780

PATIENT
  Age: 83 Year
  Sex: Female

DRUGS (1)
  1. DURAGESIC [Suspect]
     Indication: DRUG USE FOR UNKNOWN INDICATION
     Dosage: 25 UG/HR, TRANSDERMAL
     Route: 062

REACTIONS (4)
  - DRUG TOXICITY [None]
  - MYOCARDIAL INFARCTION [None]
  - PAIN [None]
  - VOMITING [None]
